FAERS Safety Report 21268766 (Version 5)
Quarter: 2022Q4

REPORT INFORMATION
  Report Type: Spontaneous
  Country: CA (occurrence: CA)
  Receive Date: 20220830
  Receipt Date: 20221201
  Transmission Date: 20230113
  Serious: Yes (Other)
  Sender: FDA-Public Use
  Company Number: CA-CELLTRION INC.-2022CA013962

PATIENT

DRUGS (2)
  1. INFLIXIMAB [Suspect]
     Active Substance: INFLIXIMAB
     Indication: Crohn^s disease
     Dosage: 600 MG, EVERY 6 WEEKS.
     Route: 042
     Dates: start: 20220220
  2. INFLIXIMAB [Suspect]
     Active Substance: INFLIXIMAB
     Dosage: 600 MG, EVERY 6 WEEKS.
     Route: 042
     Dates: start: 20220809

REACTIONS (4)
  - Autoimmune hepatitis [Not Recovered/Not Resolved]
  - Cholangitis sclerosing [Unknown]
  - Crohn^s disease [Unknown]
  - Off label use [Unknown]
